FAERS Safety Report 15611502 (Version 2)
Quarter: 2020Q3

REPORT INFORMATION
  Report Type: Spontaneous
  Country: US (occurrence: US)
  Receive Date: 20181113
  Receipt Date: 20200724
  Transmission Date: 20201102
  Serious: Yes (Hospitalization, Other)
  Sender: FDA-Public Use
  Company Number: US-AUROBINDO-AUR-APL-2018-053476

PATIENT
  Age: 50 Year
  Sex: Female

DRUGS (7)
  1. PROMETHAZINE [Suspect]
     Active Substance: PROMETHAZINE HYDROCHLORIDE
     Dosage: 25 MILLIGRAM, 12.5?25 MG ORAL AT HOME FOR MILD NAUSEA ; AS NECESSARY
     Route: 048
  2. PROMETHAZINE [Suspect]
     Active Substance: PROMETHAZINE HYDROCHLORIDE
     Dosage: 25 MILLIGRAM IN TOTAL, DURING HOSPITAL STAY, SHE RECEIVED ONE 25 MG DOSE OF INTRAVENOUS PROMETHAZINE
     Route: 042
  3. ONDANSETRON 4MG [Suspect]
     Active Substance: ONDANSETRON
     Indication: VOMITING
  4. TRAMADOL. [Suspect]
     Active Substance: TRAMADOL
     Indication: PAIN
     Dosage: 50 MILLIGRAM, AS NECESSARY
     Route: 048
  5. ONDANSETRON 4MG [Suspect]
     Active Substance: ONDANSETRON
     Indication: NAUSEA
     Dosage: 16 MILLIGRAM, TOTAL OF 16 MG IN DOSES OF 4 MG OF ONDANSETRON
     Route: 065
  6. DULOXETINE. [Suspect]
     Active Substance: DULOXETINE
     Indication: NEUROPATHY PERIPHERAL
     Dosage: 30 MILLIGRAM, TWO TIMES A DAY
     Route: 048
  7. PROMETHAZINE [Suspect]
     Active Substance: PROMETHAZINE HYDROCHLORIDE
     Indication: NAUSEA
     Dosage: 12.5 MILLIGRAM, 12.5?25 MG ORAL AT HOME FOR MILD NAUSEA ; AS NECESSARY
     Route: 048

REACTIONS (3)
  - Serotonin syndrome [Recovered/Resolved]
  - Condition aggravated [Recovered/Resolved]
  - Pain [Recovered/Resolved]
